FAERS Safety Report 8259099-7 (Version None)
Quarter: 2012Q2

REPORT INFORMATION
  Report Type: 
  Country: None (occurrence: None)
  Receive Date: 20120403
  Receipt Date: 20120403
  Transmission Date: 20120825
  Serious: Yes (Hospitalization)
  Sender: FDA-Public Use
  Company Number: None

PATIENT
  Age: 81 Year
  Sex: Male
  Weight: 118.2 kg

DRUGS (2)
  1. WARFARIN SODIUM [Suspect]
     Dosage: 4 MG UD PO
     Route: 048
     Dates: start: 20120121, end: 20120218
  2. SULFAMETHOXAZOLE AND TRIMETHOPRIM [Suspect]
     Dosage: 1 TAB BID PO
     Route: 048
     Dates: start: 20120212, end: 20120218

REACTIONS (4)
  - URINARY TRACT INFECTION [None]
  - HAEMATURIA [None]
  - PROTEUS INFECTION [None]
  - INTERNATIONAL NORMALISED RATIO INCREASED [None]
